FAERS Safety Report 23841820 (Version 3)
Quarter: 2024Q2

REPORT INFORMATION
  Report Type: Report from Study
  Country: US (occurrence: US)
  Receive Date: 20240510
  Receipt Date: 20240617
  Transmission Date: 20240716
  Serious: Yes (Hospitalization, Other)
  Sender: FDA-Public Use
  Company Number: US-INSMED, INC.-2024-01802-US

PATIENT
  Sex: Male

DRUGS (3)
  1. ARIKAYCE [Suspect]
     Active Substance: AMIKACIN
     Indication: Product used for unknown indication
     Dosage: 590 MILLIGRAM, QD
     Route: 055
     Dates: start: 202105
  2. ARIKAYCE [Suspect]
     Active Substance: AMIKACIN
     Dosage: 590 MILLIGRAM, QD
     Route: 055
  3. ARIKAYCE [Suspect]
     Active Substance: AMIKACIN
     Dosage: 590 MILLIGRAM, QD, TOOK TWO DOSES ON SOME DAYS
     Route: 055

REACTIONS (7)
  - Cardiac failure [Unknown]
  - Dependence on oxygen therapy [Unknown]
  - Respiratory failure [Unknown]
  - Dyspnoea [Unknown]
  - Therapy interrupted [Unknown]
  - Off label use [Unknown]
  - Overdose [Unknown]
